FAERS Safety Report 9192636 (Version 1)
Quarter: 2013Q1

REPORT INFORMATION
  Report Type: Spontaneous
  Country: US (occurrence: None)
  Receive Date: 20130325
  Receipt Date: 20130325
  Transmission Date: 20140127
  Serious: No
  Sender: FDA-Public Use
  Company Number: None

PATIENT
  Age: 51 Year
  Sex: Female

DRUGS (1)
  1. ENBREL [Suspect]
     Dosage: 50 MG ONCE A WEEK SUBCUTANEOUSLY
     Route: 058
     Dates: start: 20130318

REACTIONS (4)
  - Dyspnoea [None]
  - Fatigue [None]
  - Pruritus [None]
  - Rubber sensitivity [None]
